FAERS Safety Report 5122834-0 (Version None)
Quarter: 2006Q4

REPORT INFORMATION
  Report Type: 
  Country: None (occurrence: None)
  Receive Date: 20061004
  Receipt Date: 20061004
  Transmission Date: 20070319
  Serious: Yes (Other)
  Sender: FDA-Public Use
  Company Number: None

PATIENT
  Sex: Female

DRUGS (3)
  1. OXYCONTIN [Suspect]
     Indication: BACK PAIN
     Dosage: ONE Q8H
  2. OXYCONTIN [Suspect]
     Indication: FIBROMYALGIA
     Dosage: ONE Q8H
  3. OXYCONTIN [Suspect]
     Indication: MYOFASCIAL PAIN SYNDROME
     Dosage: ONE Q8H

REACTIONS (1)
  - DRUG INEFFECTIVE [None]
